FAERS Safety Report 24718180 (Version 1)
Quarter: 2024Q4

REPORT INFORMATION
  Report Type: Spontaneous
  Country: GB (occurrence: GB)
  Receive Date: 20241210
  Receipt Date: 20241210
  Transmission Date: 20250115
  Serious: Yes (Other)
  Sender: ELI LILLY AND COMPANY
  Company Number: None

PATIENT
  Age: 58 Year
  Sex: Female
  Weight: 74 kg

DRUGS (1)
  1. MOUNJARO [Suspect]
     Active Substance: TIRZEPATIDE
     Indication: Weight control
     Dosage: UNK UNK, UNKNOWN
     Route: 065
     Dates: start: 20240722, end: 20240928

REACTIONS (5)
  - Weight decreased [Recovered/Resolved with Sequelae]
  - Skin infection [Not Recovered/Not Resolved]
  - Furuncle [Unknown]
  - Hidradenitis [Unknown]
  - Intertrigo [Unknown]

NARRATIVE: CASE EVENT DATE: 20240928
